FAERS Safety Report 8132757-0 (Version None)
Quarter: 2012Q1

REPORT INFORMATION
  Report Type: 
  Country: None (occurrence: None)
  Receive Date: 20120213
  Receipt Date: 20120202
  Transmission Date: 20120608
  Serious: Yes (Hospitalization, Other)
  Sender: FDA-Public Use
  Company Number: US-JNJFOC-20120203994

PATIENT
  Sex: Female
  Weight: 68.04 kg

DRUGS (4)
  1. CAPTOPRIL [Concomitant]
     Indication: BLOOD PRESSURE
     Route: 048
     Dates: start: 19980101
  2. CENESTIN [Concomitant]
     Indication: HOT FLUSH
     Route: 048
     Dates: start: 19800101
  3. REMICADE [Suspect]
     Indication: RHEUMATOID ARTHRITIS
     Route: 042
     Dates: start: 19991201, end: 20120101
  4. VICODIN [Concomitant]
     Indication: PAIN
     Route: 048
     Dates: start: 19980101

REACTIONS (13)
  - CARPAL TUNNEL SYNDROME [None]
  - ALOPECIA [None]
  - ARTHRITIS [None]
  - AORTIC THROMBOSIS [None]
  - SINUSITIS [None]
  - WEIGHT INCREASED [None]
  - COUGH [None]
  - ABDOMINAL PAIN UPPER [None]
  - TOOTH ABSCESS [None]
  - INFLAMMATION [None]
  - MUSCULOSKELETAL STIFFNESS [None]
  - HAND DEFORMITY [None]
  - TOOTH LOSS [None]
